FAERS Safety Report 8074589-8 (Version None)
Quarter: 2012Q1

REPORT INFORMATION
  Report Type: 
  Country: None (occurrence: None)
  Receive Date: 20120102
  Receipt Date: 20120110
  Transmission Date: 20120608
  Serious: Yes (Death, Hospitalization)
  Sender: FDA-Public Use
  Company Number: 2012SP000029

PATIENT

DRUGS (3)
  1. DIFICID [Suspect]
  2. VANCOMYCIN [Suspect]
  3. FLAGYL [Suspect]

REACTIONS (2)
  - CLOSTRIDIUM DIFFICILE COLITIS [None]
  - RESPIRATORY FAILURE [None]
